FAERS Safety Report 11857165 (Version 1)
Quarter: 2015Q4

REPORT INFORMATION
  Report Type: Spontaneous
  Country: US (occurrence: US)
  Receive Date: 20151221
  Receipt Date: 20151221
  Transmission Date: 20160305
  Serious: No
  Sender: FDA-Public Use
  Company Number: US-PFIZER INC-2015422507

PATIENT
  Age: 83 Year
  Sex: Female
  Weight: 43.9 kg

DRUGS (4)
  1. PREDNISONE. [Suspect]
     Active Substance: PREDNISONE
     Dosage: 6, 2X/DAY
  2. LYRICA [Suspect]
     Active Substance: PREGABALIN
     Indication: HERPES ZOSTER
  3. LYRICA [Suspect]
     Active Substance: PREGABALIN
     Indication: POST HERPETIC NEURALGIA
     Dosage: 75 MG, 2X/DAY
  4. TAMOXIFEN [Concomitant]
     Active Substance: TAMOXIFEN
     Indication: PROPHYLAXIS
     Dosage: 20 MG, DAILY

REACTIONS (5)
  - Drug prescribing error [Unknown]
  - Incorrect dose administered [Unknown]
  - Memory impairment [Unknown]
  - Abnormal behaviour [Unknown]
  - Confusional state [Unknown]

NARRATIVE: CASE EVENT DATE: 20151125
